FAERS Safety Report 5936329-5 (Version None)
Quarter: 2008Q4

REPORT INFORMATION
  Report Type: 
  Country: None (occurrence: None)
  Receive Date: 20081029
  Receipt Date: 20081029
  Transmission Date: 20090506
  Serious: Yes (Hospitalization)
  Sender: FDA-Public Use
  Company Number: None

PATIENT
  Sex: Male

DRUGS (1)
  1. FEMARA [Suspect]
     Indication: BODY HEIGHT BELOW NORMAL
     Dosage: 2.5MG: 2 PO QHS PO
     Route: 048
     Dates: start: 20080301, end: 20081018

REACTIONS (3)
  - CONVULSION [None]
  - LOSS OF CONSCIOUSNESS [None]
  - SYNCOPE [None]
